FAERS Safety Report 5845377-5 (Version None)
Quarter: 2008Q3

REPORT INFORMATION
  Report Type: 
  Country: None (occurrence: None)
  Receive Date: 20080814
  Receipt Date: 20080805
  Transmission Date: 20090109
  Serious: Yes (Life-Threatening, Hospitalization)
  Sender: FDA-Public Use
  Company Number: GB-MERCK-0707USA01286

PATIENT
  Age: 70 Year
  Sex: Male

DRUGS (2)
  1. PRINIVIL [Suspect]
     Indication: HYPERTENSION
     Route: 048
  2. LIDOCAINE HYDROCHLORIDE [Suspect]
     Route: 061

REACTIONS (9)
  - ANGIOEDEMA [None]
  - CONVULSION [None]
  - DRUG HYPERSENSITIVITY [None]
  - HYPOGLYCAEMIA [None]
  - HYPOXIA [None]
  - LARYNGEAL OEDEMA [None]
  - OEDEMA [None]
  - RENAL FAILURE ACUTE [None]
  - SWOLLEN TONGUE [None]
